FAERS Safety Report 5063762-9 (Version None)
Quarter: 2006Q3

REPORT INFORMATION
  Report Type: 
  Country: None (occurrence: None)
  Receive Date: 20060703
  Receipt Date: 20060418
  Transmission Date: 20061208
  Serious: No
  Sender: FDA-Public Use
  Company Number: 2006S1003843

PATIENT
  Age: 24 Year
  Sex: Female
  Weight: 100.2449 kg

DRUGS (11)
  1. CLOZAPINE [Suspect]
     Indication: AUTISM SPECTRUM DISORDER
     Dosage: 100 MG;BID;PO
     Route: 048
     Dates: start: 20060330
  2. CLOZAPINE [Suspect]
     Indication: SCHIZOAFFECTIVE DISORDER
     Dosage: 100 MG;BID;PO
     Route: 048
     Dates: start: 20060330
  3. CLOZAPINE [Suspect]
     Indication: SCHIZOPHRENIA
     Dosage: 100 MG;BID;PO
     Route: 048
     Dates: start: 20060330
  4. VALPROIC ACID [Concomitant]
  5. METFORMIN [Concomitant]
  6. ATORVASTATIN CALCIUM [Concomitant]
  7. HYDROCHLOROTHIAZIDE [Concomitant]
  8. ENALAPRIL MALEATE [Concomitant]
  9. ACETYLSALICYLIC ACID SRT [Concomitant]
  10. MAGNESIUM HYDROXIDE TAB [Concomitant]
  11. ETHINYLESTRADIOL/LEVONORGESTREL [Concomitant]

REACTIONS (1)
  - GRANULOCYTOPENIA [None]
